FAERS Safety Report 21265075 (Version 3)
Quarter: 2023Q2

REPORT INFORMATION
  Report Type: Report from Study
  Country: DE (occurrence: DE)
  Receive Date: 20220829
  Receipt Date: 20230602
  Transmission Date: 20230722
  Serious: Yes (Life-Threatening, Hospitalization, Other)
  Sender: FDA-Public Use
  Company Number: DE-002147023-PHHY2019DE168419

PATIENT
  Age: 79 Year
  Sex: Female
  Weight: 56 kg

DRUGS (20)
  1. LETROZOLE [Suspect]
     Active Substance: LETROZOLE
     Indication: Hormone receptor positive HER2 negative breast cancer
     Dosage: 2.5 MILLIGRAM DAILY; DURATION 47 DAYS
     Dates: start: 20190704, end: 20190819
  2. TORSEMIDE [Suspect]
     Active Substance: TORSEMIDE
     Indication: Atrial fibrillation
     Dosage: 10 MG (STARTED ON 27 JUL 2020)A HALF IN THE MORNING), DURATION : 767 DAYS
     Dates: start: 20200727, end: 20220901
  3. KISQALI [Suspect]
     Active Substance: RIBOCICLIB
     Indication: Hormone receptor positive HER2 negative breast cancer
     Dosage: 600 MILLIGRAM DAILY; 600 MG, QD (ADMINISTRATION SCHEME 21 DAYS INTAKE, 7 DAYS PAUSE), DURATION 14 DA
     Dates: start: 20190704, end: 20190717
  4. KISQALI [Suspect]
     Active Substance: RIBOCICLIB
     Dosage: 400 MILLIGRAM DAILY; 400 MG, QD (ADMINISTRATION SCHEME 21 DAYS INTAKE, 7 DAYS PAUSE), DURATION 1 DAY
     Dates: start: 20190808, end: 20190808
  5. PALBOCICLIB [Suspect]
     Active Substance: PALBOCICLIB
     Indication: Breast cancer metastatic
     Dosage: 100 MILLIGRAM DAILY; 100 MG, QD (SCHEME 21 DAYS INTAKE, 7 DAYS PAUSE), DURATION : 392 DAYS
     Dates: start: 20200812, end: 20210907
  6. PALBOCICLIB [Suspect]
     Active Substance: PALBOCICLIB
     Dosage: 100 MILLIGRAM DAILY; 100 MG, QD (SCHEME 21 DAYS INTAKE, 7 DAYS PAUSE), DURATION : 286 DAYS
     Dates: start: 20211111, end: 20220823
  7. PALBOCICLIB [Suspect]
     Active Substance: PALBOCICLIB
     Dosage: 100 MILLIGRAM DAILY; 100 MG, QD (STARTED ON 14 JAN 2020, CYCLIC (SCHEME 21 DAYS INTAKE, 7 DAYS PAUSE
     Dates: start: 20200114
  8. PALBOCICLIB [Suspect]
     Active Substance: PALBOCICLIB
     Dosage: 100 MILLIGRAM DAILY; 100 MG, QD (SCHEME 21 DAYS INTAKE, 7 DAYS PAUSE), DURATION 56 DAYS
     Dates: start: 20200603, end: 20200728
  9. PALBOCICLIB [Suspect]
     Active Substance: PALBOCICLIB
     Dosage: 100 MILLIGRAM DAILY; 100 MG, QD (SCHEME 21 DAYS INTAKE, 7 DAYS PAUSE), THERAPY START DATE: ASKU
     Dates: end: 20200601
  10. PALBOCICLIB [Suspect]
     Active Substance: PALBOCICLIB
     Dosage: 100 MILLIGRAM DAILY; 100 MG, QD (SCHEME 21 DAYS INTAKE, 7 DAYS PAUSE). DURATION 56 DAYS
     Dates: start: 20210909, end: 20211103
  11. PALBOCICLIB [Suspect]
     Active Substance: PALBOCICLIB
     Dosage: 75 MILLIGRAM DAILY; 75 MG, QD (SCHEME 21 DAYS INTAKE, 7 DAYS PAUSE), DURATION : 63 DAYS
     Dates: start: 20220901, end: 20221102
  12. PALBOCICLIB [Suspect]
     Active Substance: PALBOCICLIB
     Dosage: 75 MILLIGRAM DAILY; 75 MG, QD (SCHEME 21 DAYS INTAKE, 7 DAYS PAUSE)
     Dates: start: 20221116, end: 20221129
  13. PALBOCICLIB [Suspect]
     Active Substance: PALBOCICLIB
     Dosage: 75 MILLIGRAM DAILY; 75 MG, QD (SCHEME 21 DAYS INTAKE, 7 DAYS PAUSE), THERAPY END DATE : NASK
     Dates: start: 20221207
  14. CALCIUM [Concomitant]
     Active Substance: CALCIUM
     Indication: Product used for unknown indication
     Dosage: 400 MILLIGRAM DAILY; (ONCE PER DAY AT NOON)
     Dates: start: 2016
  15. ASPIRIN [Concomitant]
     Active Substance: ASPIRIN
     Indication: Product used for unknown indication
     Dosage: 100 MILLIGRAM DAILY;  (ONCE PER DAY AT NOON)
     Dates: start: 2000
  16. CHOLECALCIFEROL [Concomitant]
     Active Substance: CHOLECALCIFEROL
     Indication: Product used for unknown indication
     Dosage: 20000 IU, QMO (MONTHLY)
     Dates: start: 2016
  17. LEVOTHYROXINE [Concomitant]
     Active Substance: LEVOTHYROXINE
     Indication: Product used for unknown indication
     Dosage: 88 MICROGRAM DAILY;  (ONCE PER DAY IN THE MORINING)
     Dates: start: 2011
  18. NOVALGIN [Concomitant]
     Indication: Product used for unknown indication
     Dosage: 500 MG, PRN
     Dates: start: 201904
  19. BISOPROLOL [Concomitant]
     Active Substance: BISOPROLOL
     Indication: Product used for unknown indication
     Dosage: .5 DOSAGE FORMS DAILY; 0.5 DF (10/25 MG), QD (ONCE PER DAY IN THE MORNING)
     Dates: start: 2000
  20. AMLODIPINE BESYLATE\OLMESARTAN MEDOXOMIL [Concomitant]
     Active Substance: AMLODIPINE BESYLATE\OLMESARTAN MEDOXOMIL
     Indication: Product used for unknown indication
     Dosage: 40 MILLIGRAM DAILY; (ONCE PER DAY IN THE MORNING)
     Dates: start: 2019

REACTIONS (23)
  - General physical health deterioration [Recovered/Resolved]
  - Leukopenia [Recovering/Resolving]
  - Atrial fibrillation [Recovering/Resolving]
  - Thrombocytopenia [Recovering/Resolving]
  - Hypertension [Recovered/Resolved]
  - Concomitant disease aggravated [Recovering/Resolving]
  - Neutropenia [Recovering/Resolving]
  - Nausea [Recovered/Resolved]
  - Vomiting [Recovered/Resolved]
  - Electrocardiogram QT prolonged [Recovered/Resolved]
  - Hyponatraemia [Not Recovered/Not Resolved]
  - Cardiac failure [Not Recovered/Not Resolved]
  - Renal failure [Recovering/Resolving]
  - Renal impairment [Not Recovered/Not Resolved]
  - Blood creatinine increased [Not Recovered/Not Resolved]
  - Dry skin [Recovering/Resolving]
  - Eastern Cooperative Oncology Group performance status worsened [Recovered/Resolved]
  - Dyspnoea [Not Recovered/Not Resolved]
  - Anaemia [Recovering/Resolving]
  - Cystitis [Recovered/Resolved]
  - Product use in unapproved indication [Unknown]
  - Bronchitis [Recovered/Resolved]
  - Blood glucose increased [Recovering/Resolving]

NARRATIVE: CASE EVENT DATE: 20190716
